FAERS Safety Report 9789302 (Version 1)
Quarter: 2013Q4

REPORT INFORMATION
  Report Type: Report from Study
  Country: DE (occurrence: DE)
  Receive Date: 20131231
  Receipt Date: 20131231
  Transmission Date: 20140711
  Serious: Yes (Hospitalization)
  Sender: FDA-Public Use
  Company Number: DE-BAXTER-2013BAX052612

PATIENT
  Age: 35 Year
  Sex: 0
  Weight: 65 kg

DRUGS (2)
  1. ADVATE 250 I.E. [Suspect]
     Indication: FACTOR VIII DEFICIENCY
     Route: 065
  2. ADVATE 250 I.E. [Suspect]
     Indication: PROPHYLAXIS

REACTIONS (4)
  - Cerebral haemorrhage [Recovering/Resolving]
  - Disturbance in attention [None]
  - Memory impairment [None]
  - Disorientation [None]
